FAERS Safety Report 14672448 (Version 2)
Quarter: 2018Q2

REPORT INFORMATION
  Report Type: Spontaneous
  Country: US (occurrence: US)
  Receive Date: 20180323
  Receipt Date: 20180604
  Transmission Date: 20180711
  Serious: No
  Sender: FDA-Public Use
  Company Number: US-PFIZER INC-2018113766

PATIENT
  Age: 59 Year
  Sex: Female
  Weight: 109 kg

DRUGS (5)
  1. CELEBREX [Suspect]
     Active Substance: CELECOXIB
     Indication: MUSCULOSKELETAL DISCOMFORT
     Dosage: 200 MG, 1X/DAY
     Route: 048
     Dates: start: 201712, end: 20180102
  2. CELECOXIB. [Suspect]
     Active Substance: CELECOXIB
     Indication: OSTEOARTHRITIS
     Dosage: 200 MG, DAILY
     Route: 048
     Dates: start: 20171120, end: 20180316
  3. CELEBREX [Suspect]
     Active Substance: CELECOXIB
     Indication: NECK PAIN
     Dosage: 200 MG, 2X/DAY
     Route: 048
     Dates: start: 2018, end: 2018
  4. CELEBREX [Suspect]
     Active Substance: CELECOXIB
     Indication: ARTHRALGIA
     Dosage: 200 MG, 1X/DAY
     Route: 048
     Dates: start: 2018, end: 2018
  5. LACTOSE [Suspect]
     Active Substance: LACTOSE
     Dosage: UNK

REACTIONS (10)
  - Allergic reaction to excipient [Unknown]
  - Feeling abnormal [Unknown]
  - Intervertebral disc space narrowing [Unknown]
  - Rash pustular [Recovered/Resolved]
  - Exostosis [Unknown]
  - Musculoskeletal pain [Unknown]
  - Condition aggravated [Unknown]
  - Musculoskeletal stiffness [Unknown]
  - Rash papular [Recovered/Resolved]
  - Rash [Recovering/Resolving]

NARRATIVE: CASE EVENT DATE: 2017
